FAERS Safety Report 4941175-5 (Version None)
Quarter: 2006Q1

REPORT INFORMATION
  Report Type: 
  Country: None (occurrence: None)
  Receive Date: 20060309
  Receipt Date: 20060309
  Transmission Date: 20060701
  Serious: No
  Sender: FDA-Public Use
  Company Number: None

PATIENT
  Age: 5 Year
  Sex: Female
  Weight: 30.8446 kg

DRUGS (1)
  1. CLONIDINE [Suspect]
     Indication: INSOMNIA
     Dosage: 2 TABS AT HS HS PO
     Route: 048
     Dates: start: 20060306, end: 20060307

REACTIONS (3)
  - DRUG EFFECT DECREASED [None]
  - PHARMACEUTICAL PRODUCT COMPLAINT [None]
  - POOR QUALITY DRUG ADMINISTERED [None]
